FAERS Safety Report 4762286-3 (Version None)
Quarter: 2005Q3

REPORT INFORMATION
  Report Type: 
  Country: None (occurrence: None)
  Receive Date: 20050907
  Receipt Date: 20050829
  Transmission Date: 20060218
  Serious: Yes (Death, Hospitalization)
  Sender: FDA-Public Use
  Company Number: GB-BOEHRINGER INGELHEIM PHARMACEUTICALS, INC.-2005-DE-03448GD

PATIENT
  Age: 34 Year
  Sex: Female

DRUGS (7)
  1. NEVIRAPINE [Suspect]
     Indication: HIV INFECTION
  2. LAMIVUDINE [Suspect]
     Indication: HIV INFECTION
  3. ZIDOVUDINE [Suspect]
     Indication: HIV INFECTION
  4. ABACAVIR [Suspect]
     Indication: HIV INFECTION
  5. FLUCONAZOLE [Concomitant]
     Indication: MENINGITIS CRYPTOCOCCAL
  6. AMPHOTERICIN B [Concomitant]
     Indication: MENINGITIS CRYPTOCOCCAL
     Route: 042
  7. FLUCYTOSINE [Concomitant]
     Indication: MENINGITIS CRYPTOCOCCAL
     Route: 042

REACTIONS (22)
  - BLOOD GLUCOSE DECREASED [None]
  - BRAIN DEATH [None]
  - BRAIN HERNIATION [None]
  - BRAIN OEDEMA [None]
  - CARDIO-RESPIRATORY ARREST [None]
  - CEREBRAL INFARCTION [None]
  - DISEASE RECURRENCE [None]
  - ENCEPHALITIS [None]
  - GRANULOMA [None]
  - HEADACHE [None]
  - IMMUNE RECONSTITUTION SYNDROME [None]
  - INTRACRANIAL PRESSURE INCREASED [None]
  - MENINGISM [None]
  - MENINGITIS CRYPTOCOCCAL [None]
  - NAUSEA [None]
  - PAPILLOEDEMA [None]
  - PHOTOPHOBIA [None]
  - PROTEIN TOTAL DECREASED [None]
  - SPINOCEREBELLAR DISORDER [None]
  - VISION BLURRED [None]
  - VISUAL FIELD DEFECT [None]
  - VOMITING [None]
